FAERS Safety Report 6514397-X (Version None)
Quarter: 2009Q4

REPORT INFORMATION
  Report Type: 
  Country: None (occurrence: None)
  Receive Date: 20091223
  Receipt Date: 20091216
  Transmission Date: 20100525
  Serious: Yes (Other)
  Sender: FDA-Public Use
  Company Number: US-BIOGENIDEC-2009BI034473

PATIENT
  Sex: Female

DRUGS (1)
  1. TYSABRI [Suspect]
     Indication: MULTIPLE SCLEROSIS
     Route: 042
     Dates: start: 20080513, end: 20090915

REACTIONS (4)
  - LYMPHADENOPATHY [None]
  - METASTASES TO LIVER [None]
  - SKIN CANCER [None]
  - VAGINAL CANCER METASTATIC [None]
